FAERS Safety Report 5859520-5 (Version None)
Quarter: 2008Q3

REPORT INFORMATION
  Report Type: 
  Country: None (occurrence: None)
  Receive Date: 20080827
  Receipt Date: 20080821
  Transmission Date: 20090109
  Serious: Yes (Hospitalization)
  Sender: FDA-Public Use
  Company Number: A0733231A

PATIENT
  Age: 50 Year
  Sex: Male
  Weight: 113.6 kg

DRUGS (3)
  1. AVANDIA [Suspect]
     Dosage: 8MG PER DAY
     Route: 048
     Dates: start: 20011019, end: 20030701
  2. GLUCOPHAGE [Concomitant]
     Dates: start: 20010907, end: 20080401
  3. METFORMIN HCL [Concomitant]
     Dates: start: 20020212, end: 20080401

REACTIONS (3)
  - CARDIAC DISORDER [None]
  - CARDIAC FAILURE CONGESTIVE [None]
  - SYNCOPE [None]
